FAERS Safety Report 21812302 (Version 1)
Quarter: 2022Q4

REPORT INFORMATION
  Report Type: Spontaneous
  Country: US (occurrence: None)
  Receive Date: 20221230
  Receipt Date: 20221230
  Transmission Date: 20230112
  Serious: No
  Sender: FDA-Public Use
  Company Number: None

PATIENT
  Sex: Female
  Weight: 94.35 kg

DRUGS (18)
  1. IBRANCE [Suspect]
     Active Substance: PALBOCICLIB
     Indication: Breast cancer female
     Dosage: 125 MG DAILY ORAL - 21 DAYS ON, 7 D IFF?
     Route: 048
     Dates: start: 20201231
  2. LETROZOLE [Suspect]
     Active Substance: LETROZOLE
     Indication: Breast cancer female
     Dosage: 2.5 MG DAILY ORAL?
     Route: 048
     Dates: start: 20201231
  3. ALPRAZOLAM [Concomitant]
     Active Substance: ALPRAZOLAM
  4. ALBUTEROL [Concomitant]
     Active Substance: ALBUTEROL
  5. AMLODIPINE [Concomitant]
     Active Substance: AMLODIPINE BESYLATE
  6. BACLOFEN [Concomitant]
     Active Substance: BACLOFEN
  7. ELIQUIS [Concomitant]
     Active Substance: APIXABAN
  8. FENTANYL [Concomitant]
     Active Substance: FENTANYL
  9. GABAPENTIN [Concomitant]
     Active Substance: GABAPENTIN
  10. GLYCOPYRROLATE [Concomitant]
     Active Substance: GLYCOPYRROLATE
  11. KETOROLAC [Concomitant]
     Active Substance: KETOROLAC TROMETHAMINE
  12. LIDOCAINE [Concomitant]
     Active Substance: LIDOCAINE
  13. MIDAZOLAM [Concomitant]
     Active Substance: MIDAZOLAM
  14. NEOSTIGMINE [Concomitant]
     Active Substance: NEOSTIGMINE
  15. OXYCONTIN [Concomitant]
     Active Substance: OXYCODONE HYDROCHLORIDE
  16. PREDNISONE [Concomitant]
     Active Substance: PREDNISONE
  17. SODIUM CHLORIDE [Concomitant]
     Active Substance: SODIUM CHLORIDE
  18. TRAMADOL [Concomitant]
     Active Substance: TRAMADOL

REACTIONS (1)
  - Cerebrovascular accident [None]
